FAERS Safety Report 25884399 (Version 1)
Quarter: 2025Q4

REPORT INFORMATION
  Report Type: Spontaneous
  Country: US (occurrence: None)
  Receive Date: 20251003
  Receipt Date: 20251003
  Transmission Date: 20260117
  Serious: Yes (Other)
  Sender: FDA-CTU
  Company Number: None

PATIENT
  Sex: Female

DRUGS (1)
  1. SEMAGLUTIDE [Suspect]
     Active Substance: SEMAGLUTIDE
     Indication: Weight decreased

REACTIONS (6)
  - Product preparation error [None]
  - Malaise [None]
  - Vomiting [None]
  - Product contamination [None]
  - Frustration tolerance decreased [None]
  - Diarrhoea [None]

NARRATIVE: CASE EVENT DATE: 20251001
